FAERS Safety Report 6222166-3 (Version None)
Quarter: 2009Q2

REPORT INFORMATION
  Report Type: 
  Country: None (occurrence: None)
  Receive Date: 20090611
  Receipt Date: 20090604
  Transmission Date: 20091009
  Serious: Yes (Hospitalization)
  Sender: FDA-Public Use
  Company Number: SE-ROCHE-633390

PATIENT

DRUGS (3)
  1. CAPECITABINE [Suspect]
     Dosage: LAST DOSE: 28 APRIL 2009
     Route: 065
     Dates: start: 20090406
  2. BEVACIZUMAB [Suspect]
     Dosage: LAST DOSE:28 APRIL 2009
     Route: 065
     Dates: start: 20090406
  3. IRINOTECAN HCL [Suspect]
     Dosage: LAST DOSE: 28 APRIL 2009
     Route: 065
     Dates: start: 20090406

REACTIONS (2)
  - ANAL FISTULA [None]
  - PYREXIA [None]
